FAERS Safety Report 23646078 (Version 1)
Quarter: 2024Q1

REPORT INFORMATION
  Report Type: Report from Study
  Country: US (occurrence: US)
  Receive Date: 20240319
  Receipt Date: 20240319
  Transmission Date: 20240409
  Serious: Yes (Other)
  Sender: FDA-Public Use
  Company Number: US-JNJFOC-20240336527

PATIENT
  Sex: Female

DRUGS (4)
  1. SPRAVATO [Suspect]
     Active Substance: ESKETAMINE
     Indication: Depression
     Dosage: 28 MG, 2 DOSES
     Dates: start: 20220324, end: 20220329
  2. SPRAVATO [Suspect]
     Active Substance: ESKETAMINE
     Dosage: 56 MG, 9 DOSES
     Dates: start: 20220331, end: 20220503
  3. SPRAVATO [Suspect]
     Active Substance: ESKETAMINE
     Dosage: 84 MG, 3 DOSES
     Dates: start: 20220517, end: 20220531
  4. SPRAVATO [Suspect]
     Active Substance: ESKETAMINE
     Dosage: 28 MG, 6 DOSES
     Dates: start: 20231221, end: 20240111

REACTIONS (2)
  - Knee operation [Unknown]
  - Hypertension [Unknown]
